FAERS Safety Report 15433190 (Version 1)
Quarter: 2018Q3

REPORT INFORMATION
  Report Type: Spontaneous
  Country: US (occurrence: US)
  Receive Date: 20180927
  Receipt Date: 20180927
  Transmission Date: 20181010
  Serious: No
  Sender: FDA-Public Use
  Company Number: US-NOVEN PHARMACEUTICALS, INC.-US2018000336

PATIENT

DRUGS (2)
  1. COMBIPATCH [Suspect]
     Active Substance: ESTRADIOL\NORETHINDRONE ACETATE
     Indication: OESTROGEN THERAPY
  2. COMBIPATCH [Suspect]
     Active Substance: ESTRADIOL\NORETHINDRONE ACETATE
     Indication: MENOPAUSAL SYMPTOMS
     Dosage: 0.05/0.14 MG, UNKNOWN
     Route: 062
     Dates: start: 20180513, end: 20180515

REACTIONS (9)
  - Peripheral coldness [Not Recovered/Not Resolved]
  - Anger [Unknown]
  - Off label use [Not Recovered/Not Resolved]
  - Abdominal pain upper [Recovered/Resolved]
  - Nervousness [Unknown]
  - Oral herpes [Not Recovered/Not Resolved]
  - Nasopharyngitis [Not Recovered/Not Resolved]
  - Fatigue [Unknown]
  - Abdominal distension [Unknown]

NARRATIVE: CASE EVENT DATE: 201805
